FAERS Safety Report 5309491-5 (Version None)
Quarter: 2007Q1

REPORT INFORMATION
  Report Type: 
  Country: None (occurrence: None)
  Receive Date: 20070201
  Receipt Date: 20061128
  Transmission Date: 20070707
  Serious: No
  Sender: FDA-Public Use
  Company Number: 258848

PATIENT
  Age: 67 Year
  Sex: Male
  Weight: 131.5 kg

DRUGS (2)
  1. LEVEMIR [Suspect]
     Indication: DIABETES MELLITUS NON-INSULIN-DEPENDENT
     Dosage: 58 IU, QD, SUBCUTANEOUS
     Route: 058
     Dates: start: 20060601
  2. LEVEMIR [Suspect]
     Indication: INSULIN-REQUIRING TYPE II DIABETES MELLITUS
     Dosage: 58 IU, QD, SUBCUTANEOUS
     Route: 058
     Dates: start: 20060601

REACTIONS (1)
  - INJECTION SITE IRRITATION [None]
